FAERS Safety Report 24744434 (Version 1)
Quarter: 2024Q4

REPORT INFORMATION
  Report Type: Spontaneous
  Country: US (occurrence: US)
  Receive Date: 20241217
  Receipt Date: 20241217
  Transmission Date: 20250114
  Serious: Yes (Death)
  Sender: AMGEN
  Company Number: US-AMGEN-USASP2024245110

PATIENT

DRUGS (4)
  1. PREDNISONE [Suspect]
     Active Substance: PREDNISONE
     Indication: Myeloproliferative neoplasm
     Dosage: UNK
     Route: 065
  2. PREDNISONE [Suspect]
     Active Substance: PREDNISONE
     Indication: Primary myelofibrosis
  3. PREDNISONE [Suspect]
     Active Substance: PREDNISONE
     Indication: Polycythaemia vera
  4. PREDNISONE [Suspect]
     Active Substance: PREDNISONE
     Indication: Essential thrombocythaemia

REACTIONS (2)
  - Death [Fatal]
  - Off label use [Unknown]
